FAERS Safety Report 9775631 (Version 3)
Quarter: 2014Q1

REPORT INFORMATION
  Report Type: Spontaneous
  Country: GB (occurrence: None)
  Receive Date: 20131218
  Receipt Date: 20140221
  Transmission Date: 20141002
  Serious: Yes (Death, Hospitalization, Disabling)
  Sender: FDA-Public Use
  Company Number: AUR-APL-2013-10367

PATIENT
  Age: 71 Year
  Sex: Female
  Weight: 70 kg

DRUGS (5)
  1. AMIODARONE [Suspect]
     Indication: PRODUCT USED FOR UNKNOWN INDICATION
     Dosage: 200 MG (200 MG, 1 IN 1 D), UNKNOWN
  2. METOPROLOL (METOPROLOL) [Suspect]
     Indication: ATRIAL FIBRILLATION
     Route: 048
     Dates: start: 20130517, end: 20130517
  3. BUMETANIDE (BUMETANIDE) [Concomitant]
  4. LEVOTHYROXINE (LEVOTHYROXINE) [Concomitant]
  5. LISINOPRIL (LISINOPRIL) [Concomitant]

REACTIONS (10)
  - Dyspnoea [None]
  - Cyanosis [None]
  - Fall [None]
  - Loss of consciousness [None]
  - Hypoxia [None]
  - Hypotension [None]
  - Cardiogenic shock [None]
  - Nephropathy toxic [None]
  - Shock [None]
  - Renal failure [None]
